FAERS Safety Report 5044787-6 (Version None)
Quarter: 2006Q3

REPORT INFORMATION
  Report Type: 
  Country: None (occurrence: None)
  Receive Date: 20060701
  Receipt Date: 20060315
  Transmission Date: 20061208
  Serious: No
  Sender: FDA-Public Use
  Company Number: 2006-BP-00333BP(1)

PATIENT
  Age: 64 Year
  Sex: Female

DRUGS (9)
  1. SPIRIVA [Suspect]
     Indication: CHRONIC OBSTRUCTIVE PULMONARY DISEASE
     Dosage: 18 MCG (18 MCG, 1 DAILY), IH
     Route: 055
     Dates: start: 20040101
  2. SPIRIVA [Suspect]
  3. ATENOLOL [Concomitant]
  4. DYAZIDE [Concomitant]
  5. FOLTX (TRIOBE /01502401/) [Concomitant]
  6. VALIUM [Concomitant]
  7. TYLENOL W/ CODEINE NO. 3 [Concomitant]
  8. TRIAMTERENE AND HYDROCHLOROTHIAZIDE (DYAZIDE) [Concomitant]
  9. FOLBEE (FOLIC ACID) [Concomitant]

REACTIONS (2)
  - DRY MOUTH [None]
  - DYSGEUSIA [None]
